FAERS Safety Report 4978675-8 (Version None)
Quarter: 2006Q2

REPORT INFORMATION
  Report Type: 
  Country: None (occurrence: None)
  Receive Date: 20060420
  Receipt Date: 20060124
  Transmission Date: 20061013
  Serious: Yes (Death, Hospitalization, Other)
  Sender: FDA-Public Use
  Company Number: US-MERCK-0601USA02925

PATIENT
  Age: 77 Year
  Sex: Female
  Weight: 61 kg

DRUGS (2)
  1. VIOXX [Suspect]
     Indication: ARTHRALGIA
     Route: 048
     Dates: start: 20020820, end: 20040115
  2. VIOXX [Suspect]
     Route: 048
     Dates: start: 20020820, end: 20040115

REACTIONS (7)
  - ARTHROPATHY [None]
  - ASTHMA [None]
  - DEATH [None]
  - DIABETES MELLITUS [None]
  - HIP ARTHROPLASTY [None]
  - MYOCARDIAL INFARCTION [None]
  - PAIN [None]
